FAERS Safety Report 4889531-8 (Version None)
Quarter: 2006Q1

REPORT INFORMATION
  Report Type: 
  Country: None (occurrence: None)
  Receive Date: 20060124
  Receipt Date: 20060110
  Transmission Date: 20060701
  Serious: Yes (Hospitalization)
  Sender: FDA-Public Use
  Company Number: US-KINGPHARMUSA00001-K200600024

PATIENT
  Age: 49 Year
  Sex: Male

DRUGS (1)
  1. ALTACE [Suspect]
     Dosage: UNK, QD
     Route: 048
     Dates: start: 20050815, end: 20051025

REACTIONS (13)
  - ALANINE AMINOTRANSFERASE INCREASED [None]
  - ASCITES [None]
  - ASPARTATE AMINOTRANSFERASE INCREASED [None]
  - CIRRHOSIS ALCOHOLIC [None]
  - CYTOLYTIC HEPATITIS [None]
  - FOOD ALLERGY [None]
  - GAMMA-GLUTAMYLTRANSFERASE INCREASED [None]
  - HEPATIC CIRRHOSIS [None]
  - HEPATIC FAILURE [None]
  - HEPATITIS [None]
  - JAUNDICE [None]
  - OEDEMA [None]
  - SKIN EXFOLIATION [None]
